FAERS Safety Report 23970956 (Version 1)
Quarter: 2024Q2

REPORT INFORMATION
  Report Type: Spontaneous
  Country: US (occurrence: None)
  Receive Date: 20240612
  Receipt Date: 20240612
  Transmission Date: 20240716
  Serious: Yes (Death, Hospitalization)
  Sender: FDA-Public Use
  Company Number: None

PATIENT
  Age: 48 Year
  Sex: Female

DRUGS (2)
  1. AMBRISENTAN [Suspect]
     Active Substance: AMBRISENTAN
     Indication: Pulmonary hypertension
     Dosage: 5MG QD ORAL?
     Route: 048
     Dates: start: 20240301, end: 20240608
  2. TADALAFIL [Suspect]
     Active Substance: TADALAFIL

REACTIONS (9)
  - Dyspnoea [None]
  - Depressed level of consciousness [None]
  - Foaming at mouth [None]
  - Anal incontinence [None]
  - Unresponsive to stimuli [None]
  - Tachycardia [None]
  - Bradyarrhythmia [None]
  - Pulseless electrical activity [None]
  - Cardiac arrest [None]

NARRATIVE: CASE EVENT DATE: 20240610
